FAERS Safety Report 21200989 (Version 1)
Quarter: 2022Q3

REPORT INFORMATION
  Report Type: Spontaneous
  Country: US (occurrence: None)
  Receive Date: 20220810
  Receipt Date: 20220810
  Transmission Date: 20221027
  Serious: No
  Sender: FDA-Public Use
  Company Number: None

PATIENT
  Sex: Male

DRUGS (1)
  1. COSENTYX [Suspect]
     Active Substance: SECUKINUMAB
     Indication: Rheumatoid arthritis
     Dosage: OTHER FREQUENCY : EVERY4WEEKS;?
     Route: 058
     Dates: start: 20200521

REACTIONS (3)
  - Arthralgia [None]
  - Joint swelling [None]
  - Drug ineffective [None]
